FAERS Safety Report 6991638-6 (Version None)
Quarter: 2010Q3

REPORT INFORMATION
  Report Type: 
  Country: None (occurrence: None)
  Receive Date: 20100917
  Receipt Date: 20100914
  Transmission Date: 20110219
  Serious: Yes (Death)
  Sender: FDA-Public Use
  Company Number: US-ASTRAZENECA-2007UW06141

PATIENT
  Age: 24754 Day
  Sex: Female
  Weight: 68 kg

DRUGS (16)
  1. SEROQUEL [Suspect]
     Indication: HALLUCINATION
     Dosage: 400 - 300 MG TITRATION
     Route: 048
     Dates: start: 20040419
  2. SEROQUEL [Suspect]
     Indication: ABNORMAL BEHAVIOUR
     Dosage: 400 - 300 MG TITRATION
     Route: 048
     Dates: start: 20040419
  3. SEROQUEL [Suspect]
     Dosage: 100 MG, 25 MG
     Route: 048
     Dates: end: 20040901
  4. SEROQUEL [Suspect]
     Dosage: 100 MG, 25 MG
     Route: 048
     Dates: end: 20040901
  5. SEROQUEL [Suspect]
     Dosage: 25-100  MG TITRATION
     Route: 048
     Dates: start: 20040419, end: 20040910
  6. SEROQUEL [Suspect]
     Dosage: 25-100  MG TITRATION
     Route: 048
     Dates: start: 20040419, end: 20040910
  7. ARICEPT [Concomitant]
     Indication: HALLUCINATION
     Dosage: 5 - 110 MG DAILY
     Route: 048
     Dates: start: 20040419
  8. ARICEPT [Concomitant]
     Indication: ABNORMAL BEHAVIOUR
     Dosage: 5 - 110 MG DAILY
     Route: 048
     Dates: start: 20040419
  9. LISINOPRIL [Concomitant]
     Indication: HYPERTENSION
     Dosage: 20 / 12. 5 ONE P.O.Q. DAY
     Route: 048
  10. LEVOTHYROXINE [Concomitant]
     Route: 048
  11. ALPRAZOLAM [Concomitant]
     Route: 048
  12. RISPERDAL [Concomitant]
     Indication: HALLUCINATION
     Dates: start: 20040920, end: 20050406
  13. LIPITOR [Concomitant]
     Dates: start: 20050714, end: 20050715
  14. LORAZEPAM [Concomitant]
     Dosage: 0.5 MG TO 1 MG DISPENSED
     Route: 048
     Dates: start: 20070115
  15. AMBIEN [Concomitant]
     Route: 048
     Dates: start: 20070410
  16. TEMAZEPAM [Concomitant]
     Route: 048
     Dates: start: 20070822

REACTIONS (4)
  - AMNESIA [None]
  - DEATH [None]
  - DEMENTIA ALZHEIMER'S TYPE [None]
  - TYPE 2 DIABETES MELLITUS [None]
